FAERS Safety Report 8819332 (Version 1)
Quarter: 2012Q4

REPORT INFORMATION
  Report Type: 
  Country: US (occurrence: US)
  Receive Date: 20121001
  Receipt Date: 20121001
  Transmission Date: 20130627
  Serious: Yes (Hospitalization)
  Sender: FDA-Public Use
  Company Number: US-JNJFOC-20120910712

PATIENT
  Age: 17 None
  Sex: Male
  Weight: 42.64 kg

DRUGS (6)
  1. REMICADE [Suspect]
     Indication: CROHN^S DISEASE
     Route: 042
     Dates: start: 20120417
  2. REMICADE [Suspect]
     Indication: CROHN^S DISEASE
     Route: 042
     Dates: start: 201203, end: 20120417
  3. STEROIDS NOS [Suspect]
     Indication: PRODUCT USED FOR UNKNOWN INDICATION
     Dosage: dose was being tapered down
     Route: 065
     Dates: start: 201203
  4. STEROIDS NOS [Suspect]
     Indication: PRODUCT USED FOR UNKNOWN INDICATION
     Dosage: dose was increased
     Route: 065
  5. PENTASA [Concomitant]
     Route: 048
     Dates: start: 201111
  6. VITAMIN D [Concomitant]
     Route: 065
     Dates: start: 201203

REACTIONS (6)
  - Crohn^s disease [Recovered/Resolved]
  - Weight decreased [Recovered/Resolved]
  - Decreased appetite [Recovered/Resolved]
  - Vomiting [Recovered/Resolved]
  - Therapeutic response decreased [Recovered/Resolved]
  - Blood iron decreased [Unknown]
